FAERS Safety Report 20923891 (Version 1)
Quarter: 2022Q2

REPORT INFORMATION
  Report Type: Spontaneous
  Country: US (occurrence: None)
  Receive Date: 20220606
  Receipt Date: 20220606
  Transmission Date: 20220721
  Serious: No
  Sender: FDA-Public Use
  Company Number: None

PATIENT
  Age: 25 Year
  Sex: Female
  Weight: 54.45 kg

DRUGS (7)
  1. PAXLOVID [Suspect]
     Active Substance: NIRMATRELVIR\RITONAVIR
     Indication: COVID-19
     Dosage: FREQUENCY : TWICE A DAY;?
     Route: 048
     Dates: start: 20220602, end: 20220606
  2. AUGMENTIN [Concomitant]
     Active Substance: AMOXICILLIN\CLAVULANATE POTASSIUM
     Dates: start: 20220602
  3. BENZONATATE [Concomitant]
     Active Substance: BENZONATATE
     Dates: start: 20220602
  4. Nexplanon 68 mg implant [Concomitant]
  5. fluticasone propionate HFA 110 mcg/act [Concomitant]
  6. CETIRIZINE [Concomitant]
     Active Substance: CETIRIZINE HYDROCHLORIDE
  7. METRONIDAZOLE [Concomitant]
     Active Substance: METRONIDAZOLE
     Dates: start: 20220527, end: 20220603

REACTIONS (2)
  - Pruritus [None]
  - Exfoliative rash [None]

NARRATIVE: CASE EVENT DATE: 20220605
